FAERS Safety Report 9136251 (Version 1)
Quarter: 2013Q1

REPORT INFORMATION
  Report Type: Report from Study
  Country: US (occurrence: US)
  Receive Date: 20130304
  Receipt Date: 20130304
  Transmission Date: 20140127
  Serious: No
  Sender: FDA-Public Use
  Company Number: US-ABBOTT-12P-163-0919934-00

PATIENT
  Sex: Male
  Weight: 143.01 kg

DRUGS (2)
  1. ANDROGEL 1% [Suspect]
     Indication: BLOOD TESTOSTERONE DECREASED
     Dosage: TWO 5 GRAM PACKETS DAILY
     Route: 061
     Dates: start: 2004
  2. TESTOSTERONE [Suspect]
     Indication: BLOOD TESTOSTERONE DECREASED

REACTIONS (1)
  - Blood testosterone decreased [Not Recovered/Not Resolved]
